FAERS Safety Report 17008973 (Version 1)
Quarter: 2019Q4

REPORT INFORMATION
  Report Type: Spontaneous
  Country: GR (occurrence: GR)
  Receive Date: 20191108
  Receipt Date: 20191108
  Transmission Date: 20200122
  Serious: Yes (Other)
  Sender: FDA-Public Use
  Company Number: GR-ASTRAZENECA-2019SF55970

PATIENT
  Age: 48 Year
  Sex: Female
  Weight: 82 kg

DRUGS (10)
  1. GLUCOPHAGE [Concomitant]
     Active Substance: METFORMIN HYDROCHLORIDE
  2. CRESTOR [Suspect]
     Active Substance: ROSUVASTATIN CALCIUM
     Indication: DYSLIPIDAEMIA
     Route: 048
     Dates: start: 20190215, end: 20190811
  3. SALOSPIR [Concomitant]
     Active Substance: ASPIRIN
  4. EZETIMIBE. [Concomitant]
     Active Substance: EZETIMIBE
  5. CRESTOR [Suspect]
     Active Substance: ROSUVASTATIN CALCIUM
     Indication: CORONARY ARTERY DISEASE
     Route: 048
     Dates: start: 20190215, end: 20190811
  6. VICTOZA [Concomitant]
     Active Substance: LIRAGLUTIDE
  7. SYNJARDY [Concomitant]
     Active Substance: EMPAGLIFLOZIN\METFORMIN HYDROCHLORIDE
  8. NITRODYL [Concomitant]
     Active Substance: NITROGLYCERIN
  9. LOPRESOR [Concomitant]
     Active Substance: METOPROLOL
  10. ZESTRIL [Concomitant]
     Active Substance: LISINOPRIL

REACTIONS (1)
  - Liver disorder [Recovered/Resolved]

NARRATIVE: CASE EVENT DATE: 20190811
